FAERS Safety Report 11845730 (Version 2)
Quarter: 2016Q1

REPORT INFORMATION
  Report Type: Spontaneous
  Country: US (occurrence: US)
  Receive Date: 20151217
  Receipt Date: 20160114
  Transmission Date: 20160526
  Serious: Yes (Disabling, Other)
  Sender: FDA-Public Use
  Company Number: US-PERRIGO-15US012949

PATIENT
  Age: 52 Year
  Sex: Female
  Weight: 65.76 kg

DRUGS (7)
  1. ACETAMINOPHEN W/HYDROCODONE [Concomitant]
     Active Substance: ACETAMINOPHEN\HYDROCODONE
     Indication: PRODUCT USED FOR UNKNOWN INDICATION
     Dosage: 1 DF, SINGLE
     Route: 048
     Dates: start: 20151031, end: 20151031
  2. AMOXICILLIN CLAVULANIC ACID [Concomitant]
     Active Substance: AMOXICILLIN\CLAVULANIC ACID
     Indication: PRODUCT USED FOR UNKNOWN INDICATION
     Dosage: 875-125 MG
     Route: 048
  3. VALIUM [Concomitant]
     Active Substance: DIAZEPAM
     Indication: PRODUCT USED FOR UNKNOWN INDICATION
     Dosage: 5 MG, UNK
     Route: 048
  4. LICE TREATMENT (PERMETHRIN) [Suspect]
     Active Substance: PERMETHRIN
     Indication: LICE INFESTATION
     Dosage: UNK, SINGLE
     Route: 061
     Dates: start: 20151022, end: 20151022
  5. CLINDAMYCIN [Concomitant]
     Active Substance: CLINDAMYCIN\CLINDAMYCIN PHOSPHATE
     Indication: PRODUCT USED FOR UNKNOWN INDICATION
     Dosage: 300 MG, UNK
     Route: 048
  6. METHYLPREDNISOLONE. [Concomitant]
     Active Substance: METHYLPREDNISOLONE
     Indication: PRODUCT USED FOR UNKNOWN INDICATION
     Route: 048
  7. CATAFLAM                           /00372302/ [Concomitant]
     Active Substance: DICLOFENAC POTASSIUM
     Indication: PRODUCT USED FOR UNKNOWN INDICATION
     Dosage: 50 MG, UNK
     Route: 048

REACTIONS (10)
  - Eye irritation [Recovered/Resolved]
  - Blindness transient [Recovered/Resolved]
  - Chemical burns of eye [Unknown]
  - Vision blurred [Recovering/Resolving]
  - Photophobia [Not Recovered/Not Resolved]
  - Application site pain [Recovered/Resolved]
  - Headache [Not Recovered/Not Resolved]
  - Application site ulcer [Recovering/Resolving]
  - Visual acuity reduced [Unknown]
  - Application site scab [Recovering/Resolving]

NARRATIVE: CASE EVENT DATE: 2015
